FAERS Safety Report 8059874-8 (Version None)
Quarter: 2012Q1

REPORT INFORMATION
  Report Type: 
  Country: None (occurrence: None)
  Receive Date: 20120120
  Receipt Date: 20120105
  Transmission Date: 20120608
  Serious: Yes (Hospitalization)
  Sender: FDA-Public Use
  Company Number: US-MYLANLABS-2011S1000185

PATIENT
  Age: 11 Year
  Sex: Male

DRUGS (45)
  1. ACETAMINOPHEN [Suspect]
     Indication: PYREXIA
     Route: 048
     Dates: start: 20100627, end: 20100716
  2. CLINDAMYCIN PHOSPHATE [Suspect]
     Route: 042
     Dates: start: 20100708, end: 20100710
  3. SPIRONOLACTONE [Suspect]
     Route: 048
     Dates: start: 20100626, end: 20100706
  4. SODIUM PICOSULFATE [Suspect]
     Route: 048
     Dates: start: 20100620, end: 20100620
  5. OMEPRAZOLE [Suspect]
     Route: 041
     Dates: start: 20100716, end: 20100721
  6. HEPARIN SODIUM [Suspect]
     Route: 041
     Dates: start: 20100808, end: 20100812
  7. CALCIUM GLUCONATE [Suspect]
     Route: 041
     Dates: start: 20100621, end: 20100621
  8. FENTANYL [Suspect]
     Route: 041
     Dates: start: 20100621, end: 20100708
  9. DEXMEDETOMIDINE HYDROCHLORIDE [Suspect]
     Route: 041
     Dates: start: 20100704, end: 20100705
  10. ULTIVA [Suspect]
     Route: 042
     Dates: start: 20100621, end: 20100708
  11. CEFAZOLIN [Suspect]
     Route: 041
     Dates: start: 20100622, end: 20100624
  12. MIDAZOLAM [Suspect]
     Route: 041
     Dates: start: 20100621, end: 20100621
  13. HYALURONATE SODIUM [Suspect]
     Route: 047
     Dates: start: 20100723, end: 20100821
  14. DIAZEPAM [Suspect]
     Route: 048
     Dates: start: 20100702, end: 20100722
  15. FAMOTIDINE [Suspect]
     Route: 048
     Dates: start: 20100626, end: 20100715
  16. PHENOBARBITAL TAB [Suspect]
     Route: 048
     Dates: start: 20100622, end: 20100709
  17. STREPTOCOCCUS FAECALIS [Suspect]
     Route: 048
     Dates: start: 20100711, end: 20100718
  18. LACTOBACILLUS CASEI [Suspect]
     Route: 048
     Dates: start: 20100702, end: 20100709
  19. DEXAMETHASONE [Suspect]
     Route: 042
     Dates: start: 20100617, end: 20100622
  20. ROCURONIUM BROMIDE [Suspect]
     Route: 041
     Dates: start: 20100617, end: 20100706
  21. ACETAMINOPHEN [Suspect]
     Route: 054
     Dates: start: 20100630, end: 20100716
  22. MORPHINE HCL ELIXIR [Suspect]
     Route: 041
     Dates: start: 20100621, end: 20100709
  23. NITRAZEPAM [Suspect]
     Route: 041
     Dates: start: 20100617, end: 20100709
  24. CEFTRIAXONE [Suspect]
     Indication: INFECTION
     Route: 041
     Dates: start: 20100630, end: 20100707
  25. RISPERIDONE [Suspect]
     Route: 048
     Dates: start: 20100702, end: 20100714
  26. HEPARIN SODIUM [Suspect]
     Route: 041
     Dates: start: 20100617
  27. FLURBIPROFEN [Suspect]
     Route: 041
     Dates: start: 20100709, end: 20100709
  28. ETIZOLAM [Suspect]
     Dosage: UNIT CONT:1
     Route: 048
     Dates: start: 20100701, end: 20100701
  29. DIAZEPAM [Suspect]
     Route: 048
     Dates: start: 20100622, end: 20100701
  30. FAMOTIDINE [Suspect]
     Route: 041
     Dates: start: 20100617, end: 20100626
  31. GLYCEROL 2.6% [Suspect]
     Route: 041
     Dates: start: 20100617, end: 20100618
  32. ATROPINE SULFATE [Suspect]
     Route: 041
     Dates: start: 20100617, end: 20100622
  33. DEXPANTHENOL [Suspect]
     Route: 041
     Dates: start: 20100604, end: 20100705
  34. BIOFERMIN T [Suspect]
     Route: 048
     Dates: start: 20100711, end: 20100718
  35. EPINEPHRINE [Suspect]
     Route: 041
     Dates: start: 20100621, end: 20100621
  36. NICARDIPINE HYDROCHLORIDE [Suspect]
     Route: 041
     Dates: start: 20100622, end: 20100624
  37. LIDOCAINE [Suspect]
     Route: 041
     Dates: start: 20100621, end: 20100709
  38. HYDROXYZINE HCL [Suspect]
     Route: 041
     Dates: start: 20100709, end: 20100709
  39. LANSOPRAZOLE [Suspect]
     Route: 048
     Dates: start: 20100628, end: 20100728
  40. AMPICILLIN [Suspect]
     Route: 041
     Dates: start: 20100715, end: 20100716
  41. FUROSEMIDE [Suspect]
     Route: 048
     Dates: start: 20100626, end: 20100706
  42. TRICLOFOS SODIUM [Suspect]
     Route: 048
     Dates: start: 20100628, end: 20100705
  43. OFLOXACIN [Suspect]
     Route: 047
     Dates: start: 20100728, end: 20100729
  44. PIPERACILLIN SODIUM [Suspect]
     Route: 041
     Dates: start: 20100715, end: 20100716
  45. GLYCEROL 2.6% [Suspect]
     Indication: CONSTIPATION
     Route: 054
     Dates: start: 20100621

REACTIONS (1)
  - DRUG RASH WITH EOSINOPHILIA AND SYSTEMIC SYMPTOMS [None]
